FAERS Safety Report 7171777-X (Version None)
Quarter: 2010Q4

REPORT INFORMATION
  Report Type: 
  Country: None (occurrence: None)
  Receive Date: 20101217
  Receipt Date: 20101203
  Transmission Date: 20110411
  Serious: Yes (Other)
  Sender: FDA-Public Use
  Company Number: CA-GENENTECH-310990

PATIENT
  Sex: Female

DRUGS (12)
  1. RANIBIZUMAB [Suspect]
     Indication: PRODUCT USED FOR UNKNOWN INDICATION
     Dosage: UNK
     Route: 031
     Dates: start: 20090820
  2. RANIBIZUMAB [Suspect]
     Dosage: UNK
     Route: 031
     Dates: start: 20090917
  3. RANIBIZUMAB [Suspect]
     Dosage: UNK
     Route: 031
     Dates: start: 20091015
  4. RANIBIZUMAB [Suspect]
     Dosage: UNK
     Route: 031
     Dates: start: 20091112
  5. RANIBIZUMAB [Suspect]
     Dosage: UNK
     Route: 031
     Dates: start: 20100211
  6. RANIBIZUMAB [Suspect]
     Dosage: UNK
     Route: 031
     Dates: start: 20100311
  7. RANIBIZUMAB [Suspect]
     Dosage: UNK
     Route: 031
     Dates: start: 20100406
  8. RANIBIZUMAB [Suspect]
     Dosage: UNK
     Route: 031
     Dates: start: 20100504
  9. DIAMICRON [Concomitant]
     Indication: PRODUCT USED FOR UNKNOWN INDICATION
     Dosage: 80 MG, UNK
  10. ARIMIDEX [Concomitant]
     Indication: PRODUCT USED FOR UNKNOWN INDICATION
  11. ASAPHEN [Concomitant]
     Indication: PRODUCT USED FOR UNKNOWN INDICATION
     Dosage: 80 MG, UNK
  12. LIPITOR [Concomitant]
     Indication: PRODUCT USED FOR UNKNOWN INDICATION
     Dosage: 10 MG, UNK

REACTIONS (4)
  - CORNEAL ABRASION [None]
  - DETACHMENT OF RETINAL PIGMENT EPITHELIUM [None]
  - RETINAL CYST [None]
  - RETINAL HAEMORRHAGE [None]
